FAERS Safety Report 16304753 (Version 1)
Quarter: 2019Q2

REPORT INFORMATION
  Report Type: Spontaneous
  Country: US (occurrence: US)
  Receive Date: 20190510
  Receipt Date: 20190510
  Transmission Date: 20190711
  Serious: Yes (Hospitalization, Disabling)
  Sender: FDA-Public Use
  Company Number: None

PATIENT
  Age: 70 Year
  Sex: Male
  Weight: 81.9 kg

DRUGS (6)
  1. LEVOFLOXACIN  750MG [Suspect]
     Active Substance: LEVOFLOXACIN
     Indication: PNEUMONIA
     Dosage: ?          QUANTITY:5 TABLET(S);?
     Route: 042
     Dates: start: 20190409, end: 20190418
  2. AMLODIAPINE [Concomitant]
  3. LOSARTAN. [Concomitant]
     Active Substance: LOSARTAN
  4. ASPIRIN 81 MG [Concomitant]
     Active Substance: ASPIRIN
  5. ATENOLOL. [Concomitant]
     Active Substance: ATENOLOL
  6. GENERIC CRESTAR [Concomitant]

REACTIONS (3)
  - Condition aggravated [None]
  - Tendonitis [None]
  - Essential tremor [None]

NARRATIVE: CASE EVENT DATE: 20190413
